FAERS Safety Report 10262818 (Version 2)
Quarter: 2014Q2

REPORT INFORMATION
  Report Type: Report from Study
  Country: US (occurrence: US)
  Receive Date: 20140626
  Receipt Date: 20140626
  Transmission Date: 20141212
  Serious: Yes (Hospitalization)
  Sender: FDA-Public Use
  Company Number: US-MYLANLABS-2013S1017845

PATIENT
  Age: 83 Year
  Sex: Male

DRUGS (4)
  1. CLOZAPINE TABLETS [Suspect]
     Indication: SCHIZOPHRENIA
     Route: 048
     Dates: end: 20130803
  2. CLOZAPINE TABLETS [Suspect]
     Indication: SCHIZOPHRENIA
     Route: 048
     Dates: start: 20130806
  3. LIPITOR [Concomitant]
     Route: 048
  4. SINEMET [Concomitant]
     Route: 048

REACTIONS (2)
  - Pyrexia [Recovered/Resolved]
  - Lethargy [Recovered/Resolved]
